FAERS Safety Report 9931882 (Version 1)
Quarter: 2014Q1

REPORT INFORMATION
  Report Type: Spontaneous
  Country: US (occurrence: None)
  Receive Date: 20140226
  Receipt Date: 20140226
  Transmission Date: 20141002
  Serious: Yes (Hospitalization)
  Sender: FDA-Public Use
  Company Number: IMP_07480_2014

PATIENT
  Age: 3 Year
  Sex: Female

DRUGS (1)
  1. BUPROPION [Suspect]
     Indication: PRODUCT USED FOR UNKNOWN INDICATION

REACTIONS (9)
  - Overdose [None]
  - Nausea [None]
  - Vomiting [None]
  - Mydriasis [None]
  - Leukocytosis [None]
  - Tachycardia [None]
  - Agitation [None]
  - Gait disturbance [None]
  - Toxicity to various agents [None]
